FAERS Safety Report 16724173 (Version 4)
Quarter: 2019Q4

REPORT INFORMATION
  Report Type: Report from Study
  Country: US (occurrence: US)
  Receive Date: 20190821
  Receipt Date: 20191105
  Transmission Date: 20200122
  Serious: Yes (Disabling, Other)
  Sender: FDA-Public Use
  Company Number: US-SAKK-2018SA273897AA

PATIENT
  Age: 21 Year
  Sex: Female

DRUGS (4)
  1. ALEMTUZUMAB [Suspect]
     Active Substance: ALEMTUZUMAB
     Indication: MULTIPLE SCLEROSIS
     Dosage: 12 MG, QD
     Route: 041
     Dates: start: 20180917, end: 20180921
  2. ACICLOVIR [Suspect]
     Active Substance: ACYCLOVIR
     Indication: CONSTIPATION
     Dosage: UNK UNK, UNK
     Route: 065
  3. NEURONTIN [Concomitant]
     Active Substance: GABAPENTIN
     Dosage: UNK UNK, HS
     Route: 065
  4. ALEMTUZUMAB [Suspect]
     Active Substance: ALEMTUZUMAB
     Dosage: 12 MG, QD
     Route: 041
     Dates: start: 20191015, end: 20191021

REACTIONS (21)
  - Sinus congestion [Not Recovered/Not Resolved]
  - Memory impairment [Not Recovered/Not Resolved]
  - Multiple sclerosis [Unknown]
  - Malaise [Not Recovered/Not Resolved]
  - Skin swelling [Unknown]
  - Urticaria [Unknown]
  - Erythema [Unknown]
  - Disability [Not Recovered/Not Resolved]
  - Communication disorder [Unknown]
  - Cough [Not Recovered/Not Resolved]
  - Pain [Recovered/Resolved]
  - Decreased immune responsiveness [Not Recovered/Not Resolved]
  - Condition aggravated [Not Recovered/Not Resolved]
  - Productive cough [Not Recovered/Not Resolved]
  - Dysphonia [Not Recovered/Not Resolved]
  - Pyrexia [Recovered/Resolved]
  - Fatigue [Not Recovered/Not Resolved]
  - Impaired work ability [Not Recovered/Not Resolved]
  - Sinusitis [Not Recovered/Not Resolved]
  - Skin disorder [Not Recovered/Not Resolved]
  - Frequent bowel movements [Unknown]

NARRATIVE: CASE EVENT DATE: 201809
